FAERS Safety Report 9687699 (Version 1)
Quarter: 2013Q4

REPORT INFORMATION
  Report Type: Spontaneous
  Country: US (occurrence: US)
  Receive Date: 20131114
  Receipt Date: 20131114
  Transmission Date: 20140711
  Serious: Yes (Other)
  Sender: FDA-Public Use
  Company Number: US-PFIZER INC-2013324179

PATIENT
  Age: 64 Year
  Sex: Male
  Weight: 70.3 kg

DRUGS (4)
  1. ADVIL PM [Suspect]
     Indication: PAIN
     Dosage: 2 DF, 1X/DAY
     Route: 048
     Dates: start: 2013, end: 20131109
  2. ADVIL PM [Suspect]
     Indication: SLEEP DISORDER
  3. LIPITOR [Concomitant]
     Indication: BLOOD CHOLESTEROL INCREASED
     Dosage: UNK
  4. PAXIL [Concomitant]
     Indication: DEPRESSION
     Dosage: UNK

REACTIONS (3)
  - Gastric haemorrhage [Unknown]
  - Anaemia [Unknown]
  - Gastrointestinal disorder [Unknown]
